FAERS Safety Report 8111429-2 (Version None)
Quarter: 2012Q1

REPORT INFORMATION
  Report Type: 
  Country: None (occurrence: None)
  Receive Date: 20120203
  Receipt Date: 20111201
  Transmission Date: 20120608
  Serious: No
  Sender: FDA-Public Use
  Company Number: US-GLAXOSMITHKLINE-A0956231A

PATIENT
  Age: 18 Year
  Sex: Female

DRUGS (4)
  1. TRAZODONE HCL [Concomitant]
  2. DEPAKOTE [Concomitant]
  3. LOESTRIN 1.5/30 [Suspect]
     Route: 065
  4. LAMICTAL [Suspect]
     Indication: BIPOLAR DISORDER
     Dosage: 50MG PER DAY
     Route: 048
     Dates: start: 20110701, end: 20111009

REACTIONS (5)
  - INSOMNIA [None]
  - RASH ERYTHEMATOUS [None]
  - BURNING SENSATION [None]
  - PRURITUS [None]
  - PAIN [None]
